FAERS Safety Report 10664124 (Version 1)
Quarter: 2014Q4

REPORT INFORMATION
  Report Type: Spontaneous
  Country: US (occurrence: None)
  Receive Date: 20141205
  Receipt Date: 20141205
  Transmission Date: 20150529
  Serious: Yes (Other)
  Sender: FDA-Public Use
  Company Number: 163-POMAL-14071534

PATIENT
  Age: 67 Year
  Sex: Male
  Weight: 95.71 kg

DRUGS (6)
  1. METFORMIN [Concomitant]
     Active Substance: METFORMIN HYDROCHLORIDE
  2. POMALYST [Suspect]
     Active Substance: POMALIDOMIDE
     Indication: PLASMA CELL MYELOMA
     Dosage: 21 IN 28 D
     Route: 048
     Dates: start: 20140630, end: 20140714
  3. LYRICA [Concomitant]
     Active Substance: PREGABALIN
  4. ASPIRIN. [Concomitant]
     Active Substance: ASPIRIN
  5. DIOVAN [Concomitant]
     Active Substance: VALSARTAN
  6. DEXAMETHASONE (DEXAMETHASONE) [Concomitant]
     Active Substance: DEXAMETHASONE

REACTIONS (1)
  - Thrombocytopenia [None]

NARRATIVE: CASE EVENT DATE: 20140714
